FAERS Safety Report 7452295-8 (Version None)
Quarter: 2011Q2

REPORT INFORMATION
  Report Type: 
  Country: None (occurrence: None)
  Receive Date: 20110425
  Receipt Date: 20110407
  Transmission Date: 20111010
  Serious: Yes (Other)
  Sender: FDA-Public Use
  Company Number: 2011SP015935

PATIENT
  Age: 56 Year
  Sex: Male

DRUGS (2)
  1. RIBAVIRIN [Suspect]
     Indication: HEPATITIS C
  2. PEG-INTRON [Suspect]
     Indication: HEPATITIS C
     Dosage: 80 MCG;QW;SC
     Route: 058

REACTIONS (6)
  - GASTRIC DISORDER [None]
  - ABSCESS [None]
  - APPENDICITIS PERFORATED [None]
  - PYREXIA [None]
  - DEPRESSION [None]
  - CHILLS [None]
